FAERS Safety Report 13978452 (Version 1)
Quarter: 2017Q3

REPORT INFORMATION
  Report Type: Spontaneous
  Country: RO (occurrence: RO)
  Receive Date: 20170915
  Receipt Date: 20170915
  Transmission Date: 20171128
  Serious: Yes (Hospitalization, Other)
  Sender: FDA-Public Use
  Company Number: RO-GLAXOSMITHKLINE-RO2017GSK142087

PATIENT
  Age: 26 Year
  Sex: Female
  Weight: 55.5 kg

DRUGS (4)
  1. LAMIVUDINE. [Suspect]
     Active Substance: LAMIVUDINE
     Indication: HIV INFECTION
  2. ZIDOVUDINE + LAMIVUDINE [Suspect]
     Active Substance: LAMIVUDINE\ZIDOVUDINE
     Indication: HIV INFECTION
  3. KALETRA [Suspect]
     Active Substance: LOPINAVIR\RITONAVIR
     Indication: HIV INFECTION
  4. STAVUDINE. [Suspect]
     Active Substance: STAVUDINE
     Indication: HIV INFECTION

REACTIONS (8)
  - Autoimmune thyroiditis [Recovered/Resolved]
  - Goitre [Recovered/Resolved]
  - Hypercholesterolaemia [Unknown]
  - Cerebral toxoplasmosis [Recovered/Resolved]
  - Lipodystrophy acquired [Unknown]
  - Thyroid function test abnormal [Recovered/Resolved]
  - Hypertriglyceridaemia [Unknown]
  - Immune reconstitution inflammatory syndrome [Unknown]
